FAERS Safety Report 7455487-7 (Version None)
Quarter: 2011Q2

REPORT INFORMATION
  Report Type: 
  Country: None (occurrence: None)
  Receive Date: 20110503
  Receipt Date: 20110427
  Transmission Date: 20111010
  Serious: Yes (Hospitalization, Other)
  Sender: FDA-Public Use
  Company Number: US-ROCHE-748683

PATIENT
  Sex: Male
  Weight: 68 kg

DRUGS (2)
  1. ACCUTANE [Suspect]
     Route: 065
     Dates: start: 20030101, end: 20030201
  2. ACCUTANE [Suspect]
     Indication: ACNE
     Route: 065
     Dates: start: 20000101, end: 20000401

REACTIONS (6)
  - ENTEROCUTANEOUS FISTULA [None]
  - NEPHROLITHIASIS [None]
  - CROHN'S DISEASE [None]
  - RECTAL HAEMORRHAGE [None]
  - INFLAMMATORY BOWEL DISEASE [None]
  - ABDOMINAL PAIN [None]
